FAERS Safety Report 4673050-8 (Version None)
Quarter: 2005Q2

REPORT INFORMATION
  Report Type: 
  Country: None (occurrence: None)
  Receive Date: 20050523
  Receipt Date: 20050516
  Transmission Date: 20051028
  Serious: Yes (Hospitalization, Other)
  Sender: FDA-Public Use
  Company Number: 2005BI002764

PATIENT
  Age: 53 Year
  Sex: Female
  Weight: 85.2 kg

DRUGS (19)
  1. NATALIZUMAB (NATALIZUMAB) [Suspect]
     Indication: MULTIPLE SCLEROSIS
     Dosage: 300 MG; QM; IV
     Route: 042
     Dates: start: 20040803, end: 20050118
  2. QUININE SULFATE [Concomitant]
  3. NAPROSYN [Concomitant]
  4. TRAZODONE [Concomitant]
  5. ADVIL [Concomitant]
  6. TYLENOL (CAPLET) [Concomitant]
  7. TYLENOL SINUS [Concomitant]
  8. TYLENOL W/ CODEINE NO. 3 [Concomitant]
  9. SERC [Concomitant]
  10. DICETEL [Concomitant]
  11. VISINE EYE DROPS [Concomitant]
  12. BENADRYL [Concomitant]
  13. DOCUSATE SODIUM [Concomitant]
  14. PROCTOSEDYL [Concomitant]
  15. MEDROXYPROGESTERONE [Concomitant]
  16. CELEXA [Concomitant]
  17. GLUCOSAMINE [Concomitant]
  18. ELAVIL [Concomitant]
  19. PENNSAID [Concomitant]

REACTIONS (10)
  - GASTROENTERITIS NORWALK VIRUS [None]
  - HAEMOLYTIC ANAEMIA [None]
  - HEADACHE [None]
  - IDIOPATHIC THROMBOCYTOPENIC PURPURA [None]
  - MARROW HYPERPLASIA [None]
  - MYELODYSPLASTIC SYNDROME [None]
  - POST PROCEDURAL COMPLICATION [None]
  - REFRACTORY ANAEMIA [None]
  - SHIFT TO THE LEFT [None]
  - VAGINAL HAEMORRHAGE [None]
